FAERS Safety Report 6206046-5 (Version None)
Quarter: 2009Q2

REPORT INFORMATION
  Report Type: 
  Country: None (occurrence: None)
  Receive Date: 20090526
  Receipt Date: 20090513
  Transmission Date: 20091009
  Serious: Yes (Other)
  Sender: FDA-Public Use
  Company Number: 235329K09USA

PATIENT
  Age: 34 Year
  Sex: Female

DRUGS (1)
  1. REBIF [Suspect]
     Indication: MULTIPLE SCLEROSIS
     Dates: start: 20090430, end: 20090101

REACTIONS (2)
  - CHOLECYSTECTOMY [None]
  - GALLBLADDER DISORDER [None]
